FAERS Safety Report 21022680 (Version 2)
Quarter: 2022Q3

REPORT INFORMATION
  Report Type: Spontaneous
  Country: US (occurrence: US)
  Receive Date: 20220629
  Receipt Date: 20220706
  Transmission Date: 20221027
  Serious: No
  Sender: FDA-Public Use
  Company Number: US-PFIZER INC-PV202200011264

PATIENT
  Age: 71 Year
  Sex: Male
  Weight: 99.32 kg

DRUGS (2)
  1. CARBOPLATIN [Suspect]
     Active Substance: CARBOPLATIN
     Indication: Non-small cell lung cancer
     Dosage: UNK
  2. DURVALUMAB [Suspect]
     Active Substance: DURVALUMAB
     Dosage: UNK

REACTIONS (4)
  - Fatigue [Unknown]
  - Feeling abnormal [Unknown]
  - White blood cell count abnormal [Unknown]
  - Blood pressure decreased [Unknown]
